FAERS Safety Report 4668165-4 (Version None)
Quarter: 2005Q2

REPORT INFORMATION
  Report Type: 
  Country: None (occurrence: None)
  Receive Date: 20050523
  Receipt Date: 20050202
  Transmission Date: 20051028
  Serious: Yes (Other)
  Sender: FDA-Public Use
  Company Number: PHEH2005US01598

PATIENT
  Age: 39 Year
  Sex: Female

DRUGS (13)
  1. ZOMETA [Suspect]
     Indication: BREAST CANCER
     Dosage: 4 MG EVERY MONTH
     Dates: start: 20040301, end: 20050101
  2. ADRIAMYCIN PFS [Concomitant]
     Indication: BREAST CANCER
     Dates: start: 20000101
  3. CYTOXAN [Concomitant]
     Indication: BREAST CANCER
     Dates: start: 20000101
  4. NAVELBINE [Concomitant]
     Indication: METASTASES TO BONE
     Dates: start: 20020101
  5. TAXOTERE [Concomitant]
     Indication: METASTASES TO BONE
     Dates: start: 20020101
  6. HERCEPTIN [Concomitant]
     Indication: BREAST CANCER
     Dates: start: 20020101
  7. FASLODEX [Concomitant]
     Indication: BREAST CANCER
     Dates: start: 20030101
  8. XELODA [Concomitant]
     Indication: BREAST CANCER
     Dates: start: 20030101
  9. GEMCITABINE [Concomitant]
     Indication: BREAST CANCER
     Dates: start: 20030101
  10. CARBOPLATIN [Concomitant]
     Indication: BREAST CANCER
     Dosage: 290 MG EVERY MONTH
     Dates: start: 20040201, end: 20050101
  11. GEMZAR [Concomitant]
     Dosage: 1700 MG EVERY 2 WEEKS
     Dates: start: 20040201, end: 20050101
  12. DEXAMETHASONE [Suspect]
     Dosage: 20 MG EVERY 2 WEEKS
     Dates: start: 20040201, end: 20041001
  13. DEXAMETHASONE [Suspect]
     Dosage: 20 MG MONTHLY
     Dates: start: 20041001, end: 20050101

REACTIONS (4)
  - BONE EROSION [None]
  - ENDODONTIC PROCEDURE [None]
  - JAW DISORDER [None]
  - OSTEONECROSIS [None]
